FAERS Safety Report 16990813 (Version 1)
Quarter: 2019Q4

REPORT INFORMATION
  Report Type: Spontaneous
  Country: US (occurrence: US)
  Receive Date: 20191104
  Receipt Date: 20191104
  Transmission Date: 20200122
  Serious: No
  Sender: FDA-Public Use
  Company Number: US-SA-2019SA297549

PATIENT
  Age: 29 Year
  Sex: Female

DRUGS (2)
  1. THYROGEN [Suspect]
     Active Substance: THYROTROPIN ALFA
     Dosage: 0.9 MG QD
     Route: 030
     Dates: start: 20190918, end: 20190919
  2. THYROGEN [Suspect]
     Active Substance: THYROTROPIN ALFA
     Indication: THYROID CANCER
     Dosage: 0.9 MG, QD
     Route: 030
     Dates: start: 20191021

REACTIONS (3)
  - Nausea [Recovered/Resolved]
  - Influenza like illness [Unknown]
  - Vertigo [Recovered/Resolved]
